FAERS Safety Report 6489418-3 (Version None)
Quarter: 2009Q4

REPORT INFORMATION
  Report Type: 
  Country: None (occurrence: None)
  Receive Date: 20091210
  Receipt Date: 20091207
  Transmission Date: 20100525
  Serious: Yes (Other)
  Sender: FDA-Public Use
  Company Number: JP-B.I. PHARMACEUTICALS,INC./RIDGEFIELD-2009-BP-14147NB

PATIENT
  Sex: Male
  Weight: 45.5 kg

DRUGS (11)
  1. SPIRIVA [Suspect]
     Dosage: 18 MCG
     Route: 055
  2. MIYA BM [Suspect]
     Dosage: 60 MG
     Route: 048
     Dates: end: 20081028
  3. LASIX [Suspect]
     Dosage: 20 MG
     Route: 048
     Dates: end: 20081028
  4. SINGULAIR [Suspect]
     Dosage: 10 MG
     Route: 048
     Dates: end: 20081028
  5. ZANTAC 150 [Suspect]
     Dosage: 150 MG
     Route: 048
  6. MYSLEE [Suspect]
     Dosage: 5 MG
     Route: 048
  7. EBUTOL [Suspect]
     Indication: INFECTION
     Dosage: 750 MG
     Route: 048
     Dates: start: 20081011
  8. CLARITH [Suspect]
     Indication: INFECTION
     Dosage: 800 MG
     Route: 048
     Dates: start: 20081011
  9. FLUTIDE [Suspect]
     Dosage: 400 MCG
     Route: 055
  10. STREPTOMYCIN SULFATE [Suspect]
     Indication: INFECTION
     Dosage: 500 MG
     Route: 030
  11. MYCOBUTIN [Concomitant]
     Indication: ATYPICAL MYCOBACTERIAL INFECTION
     Dosage: 150 MG
     Route: 048
     Dates: start: 20081011

REACTIONS (1)
  - OPTIC NEURITIS [None]
